FAERS Safety Report 7752344 (Version 2)
Quarter: 2014Q1

REPORT INFORMATION
  Report Type: Report from Study
  Country: BR (occurrence: BR)
  Receive Date: 20110107
  Receipt Date: 20140220
  Transmission Date: 20141002
  Serious: Yes (Other)
  Sender: FDA-Public Use
  Company Number: BR-ROCHE-751342

PATIENT
  Sex: Female
  Weight: 64 kg

DRUGS (13)
  1. ACTEMRA [Suspect]
     Indication: RHEUMATOID ARTHRITIS
     Dosage: MOST RECENT DOSE WAS ON JAN/2014.
     Route: 042
     Dates: start: 20100315, end: 20100315
  2. ACTEMRA [Suspect]
     Route: 042
     Dates: start: 20100420, end: 20100420
  3. ACTEMRA [Suspect]
     Route: 042
     Dates: start: 20100521, end: 20100521
  4. ACTEMRA [Suspect]
     Route: 042
     Dates: start: 20100620, end: 20100620
  5. ACTEMRA [Suspect]
     Route: 042
     Dates: start: 20100920, end: 20100920
  6. ACTEMRA [Suspect]
     Route: 042
     Dates: start: 20101223, end: 20101223
  7. ACTEMRA [Suspect]
     Route: 065
  8. SEDILAX [Concomitant]
     Indication: ARTHRALGIA
     Route: 065
  9. NOVALGINA [Concomitant]
     Indication: PAIN
     Route: 065
  10. PREDNISONE [Concomitant]
     Route: 065
  11. METICORTEN [Concomitant]
     Dosage: TAKEN AT NIGHT
     Route: 065
  12. ULTRACET [Concomitant]
  13. HIGROTON [Concomitant]

REACTIONS (12)
  - Weight increased [Not Recovered/Not Resolved]
  - Intervertebral disc protrusion [Not Recovered/Not Resolved]
  - Intervertebral disc protrusion [Not Recovered/Not Resolved]
  - Respiratory failure [Unknown]
  - Local swelling [Unknown]
  - Erythema [Unknown]
  - Metrorrhagia [Unknown]
  - Anaemia [Unknown]
  - Breast disorder [Unknown]
  - Nodule [Unknown]
  - Pain in extremity [Unknown]
  - Drug dose omission [Unknown]
